FAERS Safety Report 5924337-X (Version None)
Quarter: 2008Q4

REPORT INFORMATION
  Report Type: 
  Country: None (occurrence: None)
  Receive Date: 20081015
  Receipt Date: 20081002
  Transmission Date: 20090506
  Serious: Yes (Other)
  Sender: FDA-Public Use
  Company Number: 2008BI026718

PATIENT
  Age: 38 Year
  Sex: Female
  Weight: 51 kg

DRUGS (5)
  1. TYSABRI [Suspect]
     Indication: MULTIPLE SCLEROSIS
     Dosage: 300 MG; QM; IV
     Route: 042
     Dates: start: 20080422, end: 20080812
  2. BACLOFEN [Concomitant]
  3. MYDOCALM [Concomitant]
  4. NOVALGIN [Concomitant]
  5. UNIFLOX [Concomitant]

REACTIONS (1)
  - BREAST CANCER FEMALE [None]
